FAERS Safety Report 4350111-4 (Version None)
Quarter: 2004Q2

REPORT INFORMATION
  Report Type: 
  Country: None (occurrence: None)
  Receive Date: 20040429
  Receipt Date: 20040422
  Transmission Date: 20050107
  Serious: Yes (Hospitalization)
  Sender: FDA-Public Use
  Company Number: FR-GLAXOSMITHKLINE-B0331014A

PATIENT
  Age: 37 Year
  Sex: Female

DRUGS (3)
  1. ZYBAN [Suspect]
     Indication: EX-SMOKER
     Dosage: 6750MG SINGLE DOSE
     Route: 048
     Dates: start: 20040101
  2. POLARAMINE [Suspect]
     Indication: URTICARIA
     Dosage: 30MG SINGLE DOSE
     Route: 048
     Dates: start: 20040401, end: 20040401
  3. AERIUS [Concomitant]
     Route: 065

REACTIONS (5)
  - BLOOD PRESSURE DIASTOLIC DECREASED [None]
  - GRAND MAL CONVULSION [None]
  - INTENTIONAL OVERDOSE [None]
  - SUICIDE ATTEMPT [None]
  - VOMITING [None]
